FAERS Safety Report 6106659-5 (Version None)
Quarter: 2009Q1

REPORT INFORMATION
  Report Type: 
  Country: None (occurrence: None)
  Receive Date: 20090304
  Receipt Date: 20090225
  Transmission Date: 20090719
  Serious: Yes (Hospitalization)
  Sender: FDA-Public Use
  Company Number: GXKR2005DK00806

PATIENT
  Age: 51 Year
  Sex: Female

DRUGS (8)
  1. AMLODIPINE [Suspect]
     Dosage: ORAL
     Route: 048
     Dates: start: 19990101, end: 20050126
  2. ORABET (NGX) (METFORMIN) UNKNOWN [Suspect]
     Indication: DIABETES MELLITUS
     Dosage: ORAL; ORAL
     Route: 048
     Dates: start: 20041213, end: 20050126
  3. ORABET (NGX) (METFORMIN) UNKNOWN [Suspect]
     Indication: DIABETES MELLITUS
     Dosage: ORAL; ORAL
     Route: 048
     Dates: start: 20050202, end: 20050211
  4. ATACAND [Suspect]
     Dosage: ORAL
     Route: 048
     Dates: start: 19990101, end: 20050131
  5. NOVONORM (REPAGLINIDE) [Suspect]
     Indication: DIABETES MELLITUS
     Dosage: ORAL; ORAL
     Route: 048
     Dates: start: 20000101, end: 20041212
  6. NOVONORM (REPAGLINIDE) [Suspect]
     Indication: DIABETES MELLITUS
     Dosage: ORAL; ORAL
     Route: 048
     Dates: start: 20050126, end: 20050204
  7. METOPROLOL SUCCINATE [Concomitant]
  8. GLIMEPIRIDE [Concomitant]

REACTIONS (16)
  - ANOREXIA [None]
  - ARTHRALGIA [None]
  - DIZZINESS [None]
  - DRUG INTOLERANCE [None]
  - DYSPNOEA [None]
  - HYPERTENSION [None]
  - INFLUENZA LIKE ILLNESS [None]
  - MALAISE [None]
  - MUSCULAR WEAKNESS [None]
  - MYALGIA [None]
  - NAUSEA [None]
  - NECK PAIN [None]
  - PRURITUS [None]
  - TREMOR [None]
  - URTICARIA [None]
  - VOMITING [None]
